FAERS Safety Report 6355832-X (Version None)
Quarter: 2009Q3

REPORT INFORMATION
  Report Type: 
  Country: None (occurrence: None)
  Receive Date: 20090915
  Receipt Date: 20090908
  Transmission Date: 20100115
  Serious: Yes (Hospitalization, Other)
  Sender: FDA-Public Use
  Company Number: US-JNJFOC-20090903130

PATIENT
  Sex: Female
  Weight: 65.77 kg

DRUGS (6)
  1. FENTANYL TRANSDERMAL SYSTEM [Suspect]
     Indication: ARTHRALGIA
     Route: 062
  2. LEVOTHYROXINE SODIUM [Concomitant]
     Indication: THYROID DISORDER
     Dosage: 0.112 UNITS
     Route: 048
  3. NITROGLYCERIN [Concomitant]
     Indication: ANGINA PECTORIS
     Dosage: 6.9 UNSPECIFIED UNITS, AS NEEDED
     Route: 048
  4. ENALAPRIL MALEATE [Concomitant]
     Indication: BLOOD PRESSURE
     Route: 048
  5. PROCARDIA [Concomitant]
     Indication: BLOOD PRESSURE
     Route: 048
  6. ZYLOPRIM [Concomitant]
     Indication: GOUT
     Route: 048

REACTIONS (8)
  - BONE LESION [None]
  - CERVICAL VERTEBRAL FRACTURE [None]
  - FALL [None]
  - HAEMORRHAGE [None]
  - LOWER LIMB FRACTURE [None]
  - ROAD TRAFFIC ACCIDENT [None]
  - SPINAL FRACTURE [None]
  - WEIGHT DECREASED [None]
